FAERS Safety Report 8696118 (Version 2)
Quarter: 2013Q4

REPORT INFORMATION
  Report Type: Spontaneous
  Country: US (occurrence: US)
  Receive Date: 20120801
  Receipt Date: 20131105
  Transmission Date: 20140711
  Serious: Yes (Other)
  Sender: FDA-Public Use
  Company Number: US-009507513-1207USA012210

PATIENT
  Age: 52 Year
  Sex: Male

DRUGS (18)
  1. PRINIVIL [Suspect]
     Route: 048
  2. SYMBICORT [Suspect]
     Route: 055
  3. TOPROL XL TABLETS [Suspect]
     Route: 048
  4. DOXEPIN HYDROCHLORIDE [Concomitant]
  5. CYCLOBENZAPRINE HYDROCHLORIDE [Concomitant]
  6. SINGULAIR [Concomitant]
     Route: 048
  7. HYDROCHLOROTHIAZIDE [Concomitant]
  8. LIPITOR [Concomitant]
  9. ZOCOR [Concomitant]
     Route: 048
  10. ALBUTEROL SULFATE [Concomitant]
  11. COMBIVENT [Concomitant]
  12. ZYRTEC [Concomitant]
  13. LAFUTIDINE [Concomitant]
  14. CELEBREX [Concomitant]
  15. COLACE [Concomitant]
     Route: 048
  16. CARDURA [Concomitant]
     Route: 048
  17. CLONIDINE [Concomitant]
  18. DEXASONE [Concomitant]

REACTIONS (26)
  - Vision blurred [Unknown]
  - Wheezing [Unknown]
  - Orthopnoea [Unknown]
  - Hypotension [Unknown]
  - Syncope [Unknown]
  - Cough [Unknown]
  - Oedema peripheral [Unknown]
  - Rectal haemorrhage [Unknown]
  - Musculoskeletal discomfort [Unknown]
  - Oropharyngeal pain [Unknown]
  - Dry skin [Unknown]
  - Anxiety [Unknown]
  - Constipation [Unknown]
  - Gastrointestinal disorder [Unknown]
  - Influenza [Unknown]
  - Oedema [Unknown]
  - Dry mouth [Unknown]
  - Pruritus [Unknown]
  - Arthralgia [Unknown]
  - Malaise [Unknown]
  - Back pain [Unknown]
  - Gastrooesophageal reflux disease [Unknown]
  - Muscle spasms [Unknown]
  - Fatigue [Unknown]
  - Nausea [Unknown]
  - Accelerated hypertension [Unknown]
